FAERS Safety Report 15014922 (Version 1)
Quarter: 2018Q2

REPORT INFORMATION
  Report Type: Spontaneous
  Country: US (occurrence: US)
  Receive Date: 20180615
  Receipt Date: 20180615
  Transmission Date: 20180711
  Serious: Yes (Other)
  Sender: FDA-Public Use
  Company Number: US-ROCHE-2138049

PATIENT
  Age: 37 Year
  Sex: Female

DRUGS (2)
  1. XOLAIR [Suspect]
     Active Substance: OMALIZUMAB
     Indication: URTICARIA
     Route: 058
     Dates: start: 20170530
  2. BOTOX [Concomitant]
     Active Substance: ONABOTULINUMTOXINA
     Indication: URTICARIA
     Dosage: 200 UNITS
     Route: 030
     Dates: start: 20170731

REACTIONS (5)
  - Post-traumatic neck syndrome [Not Recovered/Not Resolved]
  - Migraine [Not Recovered/Not Resolved]
  - Muscle strain [Not Recovered/Not Resolved]
  - Tendon disorder [Unknown]
  - Concussion [Not Recovered/Not Resolved]

NARRATIVE: CASE EVENT DATE: 20180427
